FAERS Safety Report 10042778 (Version 1)
Quarter: 2014Q1

REPORT INFORMATION
  Report Type: Spontaneous
  Country: US (occurrence: US)
  Receive Date: 20140327
  Receipt Date: 20140327
  Transmission Date: 20141002
  Serious: Yes (Other)
  Sender: FDA-Public Use
  Company Number: US-BAXTER-2014BAX014617

PATIENT
  Age: 34 Year
  Sex: Female

DRUGS (2)
  1. HIGHLY CONCENTRATED POTASSIUM CHLORIDE INJECTION [Suspect]
     Indication: ABORTION INDUCED
  2. HIGHLY CONCENTRATED POTASSIUM CHLORIDE INJECTION [Suspect]
     Indication: OFF LABEL USE

REACTIONS (1)
  - Abortion induced [Recovered/Resolved]
